FAERS Safety Report 7965751-0 (Version None)
Quarter: 2011Q4

REPORT INFORMATION
  Report Type: 
  Country: None (occurrence: None)
  Receive Date: 20111208
  Receipt Date: 20111208
  Transmission Date: 20120403
  Serious: Yes (Other)
  Sender: FDA-Public Use
  Company Number: US-PFIZER INC-2011296802

PATIENT
  Sex: Female
  Weight: 72.562 kg

DRUGS (5)
  1. DYAZIDE [Concomitant]
     Dosage: UNK
  2. ZOLOFT [Suspect]
     Dosage: 100 MG, 1X/DAY
  3. ZOLOFT [Suspect]
     Indication: DEPRESSION
     Dosage: 50 MG, 1X/DAY
     Route: 048
  4. DONNATAL [Concomitant]
     Dosage: UNK
  5. ZOLOFT [Suspect]
     Dosage: 150 MG, 1X/DAY

REACTIONS (5)
  - LOWER LIMB FRACTURE [None]
  - FALL [None]
  - DRUG INEFFECTIVE [None]
  - LOSS OF CONSCIOUSNESS [None]
  - ANKLE FRACTURE [None]
